FAERS Safety Report 17398169 (Version 2)
Quarter: 2020Q1

REPORT INFORMATION
  Report Type: Report from Study
  Country: CO (occurrence: CO)
  Receive Date: 20200210
  Receipt Date: 20200213
  Transmission Date: 20200409
  Serious: Yes (Death, Hospitalization, Other)
  Sender: FDA-Public Use
  Company Number: CO-SA-2020SA031609

PATIENT
  Age: 77 Year
  Sex: Male

DRUGS (2)
  1. CABAZITAXEL [Suspect]
     Active Substance: CABAZITAXEL
     Indication: PROSTATE CANCER METASTATIC
     Dosage: 60 MG, Q3W
     Route: 042
     Dates: start: 20200103, end: 20200103
  2. CABAZITAXEL [Suspect]
     Active Substance: CABAZITAXEL
     Dosage: 60 MG, Q3W
     Route: 042
     Dates: start: 20180816, end: 20180816

REACTIONS (6)
  - Asthenia [Recovering/Resolving]
  - Asphyxia [Recovered/Resolved]
  - Decreased appetite [Recovering/Resolving]
  - Respiratory arrest [Fatal]
  - Oxygen saturation decreased [Not Recovered/Not Resolved]
  - Therapy cessation [Unknown]

NARRATIVE: CASE EVENT DATE: 20200130
